FAERS Safety Report 4949709-1 (Version None)
Quarter: 2006Q1

REPORT INFORMATION
  Report Type: 
  Country: None (occurrence: None)
  Receive Date: 20060315
  Receipt Date: 20060228
  Transmission Date: 20060701
  Serious: Yes (Hospitalization, Other)
  Sender: FDA-Public Use
  Company Number: US200602005670

PATIENT
  Age: 12 Year
  Sex: Female
  Weight: 31.8 kg

DRUGS (1)
  1. STRATTERA [Suspect]
     Indication: ATTENTION DEFICIT/HYPERACTIVITY DISORDER
     Dosage: 36 MG,
     Dates: end: 20060226

REACTIONS (7)
  - APPENDICECTOMY [None]
  - DECREASED APPETITE [None]
  - DISTURBANCE IN ATTENTION [None]
  - MALAISE [None]
  - MIDDLE INSOMNIA [None]
  - VIRAL INFECTION [None]
  - VOMITING [None]
